FAERS Safety Report 9012247 (Version 1)
Quarter: 2013Q1

REPORT INFORMATION
  Report Type: Spontaneous
  Country: NZ (occurrence: NZ)
  Receive Date: 20130114
  Receipt Date: 20130114
  Transmission Date: 20140127
  Serious: Yes (Other)
  Sender: FDA-Public Use
  Company Number: PHHY2013NZ002667

PATIENT
  Age: 84 Year
  Sex: Female

DRUGS (2)
  1. ACLASTA [Suspect]
     Dosage: UNK UKN, UNK
     Route: 042
  2. ACLASTA [Suspect]
     Dosage: UNK UKN, UNK
     Route: 042
     Dates: start: 20121205

REACTIONS (7)
  - Altered state of consciousness [Unknown]
  - Fear of injection [Unknown]
  - Incorrect dose administered [Unknown]
  - Anxiety [Unknown]
  - Thirst [Unknown]
  - Nausea [Unknown]
  - Dizziness [Unknown]
